FAERS Safety Report 16194259 (Version 2)
Quarter: 2019Q2

REPORT INFORMATION
  Report Type: Report from Study
  Country: US (occurrence: US)
  Receive Date: 20190414
  Receipt Date: 20190626
  Transmission Date: 20190711
  Serious: Yes (Hospitalization, Other)
  Sender: FDA-Public Use
  Company Number: US-BIOGEN-2019BI00724328

PATIENT
  Sex: Female

DRUGS (1)
  1. AVONEX [Suspect]
     Active Substance: INTERFERON BETA-1A
     Indication: MULTIPLE SCLEROSIS
     Route: 030

REACTIONS (7)
  - Seizure [Recovered/Resolved]
  - Myocardial infarction [Recovered/Resolved]
  - Nephrolithiasis [Recovered/Resolved]
  - Multiple sclerosis relapse [Recovered/Resolved]
  - Bladder disorder [Recovered/Resolved]
  - Kidney infection [Recovered/Resolved]
  - Gastrointestinal disorder [Recovered/Resolved]

NARRATIVE: CASE EVENT DATE: 2014
